FAERS Safety Report 8454084-4 (Version None)
Quarter: 2012Q2

REPORT INFORMATION
  Report Type: 
  Country: None (occurrence: None)
  Receive Date: 20120620
  Receipt Date: 20120608
  Transmission Date: 20120825
  Serious: Yes (Other)
  Sender: FDA-Public Use
  Company Number: JP-PFIZER INC-2009303923

PATIENT
  Age: 77 Year
  Sex: Female
  Weight: 35 kg

DRUGS (7)
  1. VIAGRA [Suspect]
     Dosage: UNK
     Dates: start: 20070308, end: 20080416
  2. ALDACTONE [Concomitant]
     Dosage: UNK
     Route: 048
     Dates: start: 20060721
  3. BOSENTAN [Concomitant]
     Indication: PULMONARY EMBOLISM
     Route: 048
     Dates: start: 20070201
  4. ASPIRIN [Concomitant]
     Dosage: UNK
     Route: 048
     Dates: start: 20070201
  5. LIPITOR [Concomitant]
     Dosage: UNK
     Route: 048
     Dates: start: 20070201
  6. PROCYLIN [Concomitant]
     Dosage: UNK
     Route: 048
     Dates: start: 20060515
  7. WARFARIN POTASSIUM [Concomitant]
     Dosage: UNK
     Route: 048
     Dates: start: 20061226

REACTIONS (5)
  - COLON CANCER [None]
  - LARGE INTESTINAL HAEMORRHAGE [None]
  - GASTROINTESTINAL CARCINOMA [None]
  - HAEMATOCHEZIA [None]
  - ANAEMIA [None]
